FAERS Safety Report 21573015 (Version 3)
Quarter: 2022Q4

REPORT INFORMATION
  Report Type: Spontaneous
  Country: AT (occurrence: AT)
  Receive Date: 20221109
  Receipt Date: 20221118
  Transmission Date: 20230112
  Serious: Yes (Other)
  Sender: FDA-Public Use
  Company Number: AT-ABBVIE-4150507

PATIENT
  Sex: Female
  Weight: 52 kg

DRUGS (8)
  1. ETANERCEPT [Suspect]
     Active Substance: ETANERCEPT
     Dosage: UNK
  2. METHOTREXATE SODIUM [Suspect]
     Active Substance: METHOTREXATE SODIUM
     Dosage: 10 MG, WEEKLY
     Dates: start: 200811, end: 2015
  3. TOCILIZUMAB [Suspect]
     Active Substance: TOCILIZUMAB
     Dosage: UNK
     Dates: start: 201703
  4. HUMIRA [Suspect]
     Active Substance: ADALIMUMAB
     Dosage: UNK, (HUMIRA DISCONTINUED }10 YRS)
     Route: 058
     Dates: start: 200811, end: 2009
  5. CERTOLIZUMAB [Suspect]
     Active Substance: CERTOLIZUMAB
     Dosage: UNK
     Dates: start: 201508, end: 202102
  6. ARAVA [Concomitant]
     Active Substance: LEFLUNOMIDE
     Dosage: UNK
     Dates: start: 200811
  7. INFLIXIMAB [Concomitant]
     Active Substance: INFLIXIMAB
     Dosage: UNK, MONTHLY
     Route: 042
     Dates: start: 200906
  8. PREDNISOLONE [Concomitant]
     Active Substance: PREDNISOLONE
     Dosage: UNK
     Dates: start: 201610, end: 201610

REACTIONS (5)
  - Rheumatoid arthritis [Unknown]
  - Leukopenia [Unknown]
  - Maternal exposure during pregnancy [Unknown]
  - Injection site hypersensitivity [Unknown]
  - Rash [Unknown]
